FAERS Safety Report 21750814 (Version 1)
Quarter: 2022Q4

REPORT INFORMATION
  Report Type: Spontaneous
  Country: US (occurrence: US)
  Receive Date: 20221219
  Receipt Date: 20221219
  Transmission Date: 20230113
  Serious: No
  Sender: FDA-Public Use
  Company Number: US-ORGANON-O2212USA000286

PATIENT
  Sex: Female

DRUGS (1)
  1. NEXPLANON [Suspect]
     Active Substance: ETONOGESTREL
     Dosage: 1 DOSAGE FORM (IMPLANT); LEFT ARM
     Route: 059
     Dates: start: 20221128

REACTIONS (7)
  - Implant site discharge [Unknown]
  - Implant site swelling [Unknown]
  - Implant site erythema [Unknown]
  - Heart rate increased [Unknown]
  - Blood pressure increased [Unknown]
  - Body temperature increased [Unknown]
  - Wound [Unknown]

NARRATIVE: CASE EVENT DATE: 20220101
